FAERS Safety Report 4955434-3 (Version None)
Quarter: 2006Q1

REPORT INFORMATION
  Report Type: 
  Country: None (occurrence: None)
  Receive Date: 20060328
  Receipt Date: 20060307
  Transmission Date: 20060701
  Serious: Yes (Life-Threatening, Hospitalization)
  Sender: FDA-Public Use
  Company Number: GB-AVENTIS-200612231GDDC

PATIENT
  Age: 62 Year
  Sex: Female

DRUGS (6)
  1. ARAVA [Suspect]
     Indication: RHEUMATOID ARTHRITIS
     Route: 048
     Dates: start: 20010601, end: 20060225
  2. PREDNISOLONE [Concomitant]
     Indication: RHEUMATOID ARTHRITIS
  3. THYROXINE [Concomitant]
     Indication: HYPOTHYROIDISM
  4. FOSAMAX [Concomitant]
     Indication: OSTEOPOROSIS PROPHYLAXIS
     Dates: start: 20010601
  5. ATENOLOL [Concomitant]
     Indication: HYPERTENSION
  6. NIFEDIPINE [Concomitant]
     Indication: HYPERTENSION

REACTIONS (4)
  - MUSCLE INJURY [None]
  - POLYMYOSITIS [None]
  - RENAL FAILURE ACUTE [None]
  - RHABDOMYOLYSIS [None]
